FAERS Safety Report 8722367 (Version 8)
Quarter: 2015Q1

REPORT INFORMATION
  Report Type: Spontaneous
  Country: US (occurrence: US)
  Receive Date: 20120814
  Receipt Date: 20150210
  Transmission Date: 20150721
  Serious: Yes (Hospitalization, Disabling, Other)
  Sender: FDA-Public Use
  Company Number: US-009507513-1208USA004436

PATIENT
  Sex: Female
  Weight: 63.39 kg

DRUGS (11)
  1. VITAMIN D [Concomitant]
     Active Substance: CHOLECALCIFEROL
     Dosage: UNK
     Dates: start: 1987
  2. FOSAMAX [Suspect]
     Active Substance: ALENDRONATE SODIUM
     Indication: OSTEOPOROSIS
     Dosage: UNK
     Route: 048
     Dates: start: 1998, end: 201005
  3. ASCORBIC ACID. [Concomitant]
     Active Substance: ASCORBIC ACID
     Dosage: UNK
     Dates: start: 1987
  4. FOSAMAX [Suspect]
     Active Substance: ALENDRONATE SODIUM
     Dosage: 70 MG, QW
     Route: 048
     Dates: start: 2005, end: 201005
  5. VITAMINS (UNSPECIFIED) [Concomitant]
     Active Substance: VITAMINS
     Dosage: UNK
     Dates: start: 1987
  6. CALCIUM (UNSPECIFIED) [Concomitant]
     Active Substance: CALCIUM
     Dosage: UNK
     Dates: start: 1987
  7. FOSAMAX [Suspect]
     Active Substance: ALENDRONATE SODIUM
     Indication: OSTEOPOROSIS
     Dosage: 10 MG, QD
     Route: 048
     Dates: end: 201005
  8. FOSAMAX PLUS D [Suspect]
     Active Substance: ALENDRONATE SODIUM\CHOLECALCIFEROL
     Indication: OSTEOPOROSIS
     Dosage: UNK
     Route: 048
     Dates: start: 1998, end: 201005
  9. FOSAMAX PLUS D [Suspect]
     Active Substance: ALENDRONATE SODIUM\CHOLECALCIFEROL
     Indication: OSTEOPENIA
  10. ALENDRONATE SODIUM. [Suspect]
     Active Substance: ALENDRONATE SODIUM
     Indication: OSTEOPOROSIS
     Dosage: 70 MG, UNK
     Route: 048
     Dates: start: 20100111, end: 20100415
  11. VITAMIN E [Concomitant]
     Active Substance: .ALPHA.-TOCOPHEROL
     Dosage: UNK
     Dates: start: 1987

REACTIONS (38)
  - Intramedullary rod insertion [Unknown]
  - Urethral caruncle [Unknown]
  - Anaemia postoperative [Unknown]
  - Vitamin D deficiency [Unknown]
  - Joint injury [Unknown]
  - Tooth fracture [Unknown]
  - Noninfective gingivitis [Unknown]
  - Asthenia [Unknown]
  - Bone density decreased [Unknown]
  - Foot deformity [Unknown]
  - Foot fracture [Unknown]
  - Eczema [Unknown]
  - Tooth disorder [Unknown]
  - Stress fracture [Unknown]
  - Foot fracture [Unknown]
  - Pollakiuria [Unknown]
  - Spinal osteoarthritis [Unknown]
  - Artificial crown procedure [Unknown]
  - Neck pain [Not Recovered/Not Resolved]
  - Femur fracture [Unknown]
  - Bladder prolapse [Unknown]
  - Tooth disorder [Unknown]
  - Tooth disorder [Unknown]
  - Artificial crown procedure [Unknown]
  - Tooth disorder [Unknown]
  - Pain in extremity [Not Recovered/Not Resolved]
  - Fall [Unknown]
  - Urinary incontinence [Unknown]
  - Foot deformity [Unknown]
  - Osteoarthritis [Not Recovered/Not Resolved]
  - Tooth disorder [Unknown]
  - Dental caries [Unknown]
  - Vitamin D deficiency [Unknown]
  - Urinary tract infection [Unknown]
  - Urinary tract infection [Unknown]
  - Uterine prolapse [Unknown]
  - Temperature intolerance [Unknown]
  - Hyponatraemia [Unknown]

NARRATIVE: CASE EVENT DATE: 1996
